FAERS Safety Report 26154799 (Version 1)
Quarter: 2025Q4

REPORT INFORMATION
  Report Type: Spontaneous
  Country: KR (occurrence: KR)
  Receive Date: 20251215
  Receipt Date: 20251215
  Transmission Date: 20260119
  Serious: Yes (Hospitalization)
  Sender: ASTELLAS
  Company Number: KR-ASTELLAS-2025-AER-068776

PATIENT
  Sex: Male
  Weight: 52.25 kg

DRUGS (1)
  1. VESICARE [Suspect]
     Active Substance: SOLIFENACIN SUCCINATE
     Indication: Product used for unknown indication
     Route: 048
     Dates: start: 20240312, end: 20250226

REACTIONS (1)
  - Micturition disorder [Recovered/Resolved]

NARRATIVE: CASE EVENT DATE: 20250225
